FAERS Safety Report 24668382 (Version 1)
Quarter: 2024Q4

REPORT INFORMATION
  Report Type: Spontaneous
  Country: US (occurrence: US)
  Receive Date: 20241127
  Receipt Date: 20241127
  Transmission Date: 20250115
  Serious: No
  Sender: PADAGIS
  Company Number: US-PADAGIS-2024PAD01810

PATIENT

DRUGS (7)
  1. CALCIUM ACETATE [Suspect]
     Active Substance: CALCIUM ACETATE
     Indication: Calcinosis
     Dosage: 667 MG, TID (BEFORE MEAL)
     Route: 048
  2. ACETAZOLAMIDE [Suspect]
     Active Substance: ACETAZOLAMIDE
     Indication: Calcinosis
     Dosage: 250 MG, BID
     Route: 048
  3. GABAPENTIN [Concomitant]
     Active Substance: GABAPENTIN
     Indication: Pain
     Dosage: 300 MG, QD
     Route: 048
  4. GABAPENTIN [Concomitant]
     Active Substance: GABAPENTIN
     Dosage: 300 MG, TID
     Route: 048
  5. SEVELAMER [Concomitant]
     Active Substance: SEVELAMER
     Indication: Calcinosis
     Dosage: 800 MG, BID
     Route: 048
  6. SEVELAMER [Concomitant]
     Active Substance: SEVELAMER
     Dosage: 1600 MG, TID
     Route: 048
  7. SEVELAMER [Concomitant]
     Active Substance: SEVELAMER
     Dosage: 2400 MG, TID
     Route: 048

REACTIONS (2)
  - Therapy partial responder [Unknown]
  - Product use in unapproved indication [Unknown]
